FAERS Safety Report 9320632 (Version 1)
Quarter: 2013Q2

REPORT INFORMATION
  Report Type: Spontaneous
  Country: HK (occurrence: HK)
  Receive Date: 20130531
  Receipt Date: 20130531
  Transmission Date: 20140414
  Serious: Yes (Life-Threatening, Hospitalization, Other)
  Sender: FDA-Public Use
  Company Number: HK-ROCHE-1204821

PATIENT
  Age: 24 Year
  Sex: Female
  Weight: 20.43 kg

DRUGS (7)
  1. TOCILIZUMAB [Suspect]
     Indication: RHEUMATOID ARTHRITIS
     Route: 041
     Dates: start: 20121024
  2. TOCILIZUMAB [Suspect]
     Route: 041
     Dates: start: 20121128
  3. TOCILIZUMAB [Suspect]
     Route: 041
     Dates: start: 20121228
  4. TOCILIZUMAB [Suspect]
     Route: 041
     Dates: start: 20120122
  5. TOCILIZUMAB [Suspect]
     Route: 041
     Dates: start: 20120219
  6. HYDROXYCHLOROQUINE [Concomitant]
     Route: 065
  7. PREDNISOLONE [Concomitant]
     Route: 065

REACTIONS (8)
  - Staphylococcal infection [Recovered/Resolved with Sequelae]
  - Candida infection [Recovered/Resolved with Sequelae]
  - Arthritis bacterial [Recovered/Resolved with Sequelae]
  - Brain abscess [Recovered/Resolved with Sequelae]
  - Neutropenia [Unknown]
  - Gangrene [Not Recovered/Not Resolved]
  - Depressed level of consciousness [Unknown]
  - Tracheostomy [Unknown]
